FAERS Safety Report 8790411 (Version 1)
Quarter: 2012Q4

REPORT INFORMATION
  Report Type: Report from Study
  Country: CA (occurrence: CA)
  Receive Date: 20120917
  Receipt Date: 20120917
  Transmission Date: 20130627
  Serious: Yes (Hospitalization)
  Sender: FDA-Public Use
  Company Number: CA-JNJFOC-20120902394

PATIENT
  Age: 62 Year
  Sex: Male
  Weight: 76 kg

DRUGS (15)
  1. REMICADE [Suspect]
     Indication: PSORIASIS
     Route: 042
     Dates: start: 20081223
  2. NITRO-DUR [Concomitant]
     Dosage: 14 hours daily
     Route: 061
  3. METOPROLOL [Concomitant]
     Route: 065
  4. ACETYL SALICYLIC ACID [Concomitant]
     Route: 065
  5. CLOPIDOGREL [Concomitant]
     Route: 065
  6. NOVO-LORAZEM [Concomitant]
     Route: 065
  7. ROSUVASTATIN [Concomitant]
     Route: 065
  8. EZETROL [Concomitant]
     Route: 065
  9. FENOFIBRATE [Concomitant]
     Route: 065
  10. SYNTHROID [Concomitant]
     Route: 065
  11. RAMIPRIL [Concomitant]
     Route: 065
  12. NEXIUM [Concomitant]
     Route: 065
  13. CODEINE [Concomitant]
     Dosage: 2-6 ml HS PRN
     Route: 065
  14. METHOTREXATE [Concomitant]
     Route: 065
  15. FOLIC ACID [Concomitant]
     Route: 065

REACTIONS (1)
  - Coronary artery occlusion [Unknown]
